FAERS Safety Report 25544346 (Version 2)
Quarter: 2025Q3

REPORT INFORMATION
  Report Type: Spontaneous
  Country: EU (occurrence: EU)
  Receive Date: 20250711
  Receipt Date: 20250807
  Transmission Date: 20251020
  Serious: Yes (Hospitalization, Disabling)
  Sender: LEO PHARM
  Company Number: EU-LEO Pharma-379264

PATIENT
  Age: 39 Year
  Sex: Male

DRUGS (1)
  1. PROTOPIC [Suspect]
     Active Substance: TACROLIMUS
     Indication: Dermatitis atopic
     Route: 003
     Dates: start: 2000, end: 202406

REACTIONS (1)
  - Infertility male [Unknown]

NARRATIVE: CASE EVENT DATE: 20231001
